FAERS Safety Report 19196415 (Version 2)
Quarter: 2021Q2

REPORT INFORMATION
  Report Type: Spontaneous
  Country: IN (occurrence: IN)
  Receive Date: 20210429
  Receipt Date: 20210629
  Transmission Date: 20210717
  Serious: Yes (Death, Other)
  Sender: FDA-Public Use
  Company Number: IN-PFIZER INC-2019346500

PATIENT
  Age: 54 Year
  Sex: Female

DRUGS (4)
  1. PALBACE [Suspect]
     Active Substance: PALBOCICLIB
     Indication: BREAST CANCER METASTATIC
     Dosage: 125 MG, 1X/DAY
     Route: 048
     Dates: start: 20171024
  2. PALBACE [Suspect]
     Active Substance: PALBOCICLIB
     Dosage: 100 MG, CYCLIC (21DAYS ON AND 7 DAYS OFF (REPORTED AS D1?D21, CYCLE 28 DAYS)
     Route: 048
  3. DENOSUMAB [Concomitant]
     Active Substance: DENOSUMAB
     Dosage: 120 MG, UNK
     Route: 058
  4. LETROZOLE. [Concomitant]
     Active Substance: LETROZOLE
     Dosage: 2.5 MG, 1X/DAY

REACTIONS (5)
  - Hypertension [Unknown]
  - Asthenia [Unknown]
  - COVID-19 [Fatal]
  - Diabetes mellitus [Unknown]
  - Blood creatinine increased [Unknown]
